FAERS Safety Report 8013724-4 (Version None)
Quarter: 2011Q4

REPORT INFORMATION
  Report Type: 
  Country: None (occurrence: None)
  Receive Date: 20111229
  Receipt Date: 20111219
  Transmission Date: 20120403
  Serious: Yes (Hospitalization)
  Sender: FDA-Public Use
  Company Number: US-ELI_LILLY_AND_COMPANY-US201108003458

PATIENT
  Sex: Female

DRUGS (5)
  1. FORTEO [Suspect]
     Indication: OSTEOPOROSIS
     Dosage: 20 UG, QD
     Route: 058
  2. FORTEO [Suspect]
     Dosage: 20 UG, QD
     Route: 058
  3. FORTEO [Suspect]
     Dosage: 20 UG, QD
     Route: 058
  4. FORTEO [Suspect]
     Dosage: 20 UG, QD
     Route: 058
     Dates: end: 20111105
  5. FORTEO [Suspect]
     Dosage: 20 UG, QD
     Route: 058
     Dates: start: 20111101

REACTIONS (13)
  - BALANCE DISORDER [None]
  - ASTHENIA [None]
  - MUSCLE SPASMS [None]
  - HOSPITALISATION [None]
  - TREMOR [None]
  - THERMAL BURN [None]
  - MALAISE [None]
  - DIZZINESS [None]
  - INTENTIONAL DRUG MISUSE [None]
  - INJECTION SITE HAEMATOMA [None]
  - MYALGIA [None]
  - GAIT DISTURBANCE [None]
  - FALL [None]
